FAERS Safety Report 7690471-X (Version None)
Quarter: 2011Q3

REPORT INFORMATION
  Report Type: 
  Country: None (occurrence: None)
  Receive Date: 20110812
  Receipt Date: 20110718
  Transmission Date: 20111222
  Serious: Yes (Other)
  Sender: FDA-Public Use
  Company Number: 75818

PATIENT
  Sex: Female

DRUGS (3)
  1. 2% SALICULIC ACID, OXY CLINICAL FACE WASH [Suspect]
     Indication: ACNE
     Dosage: TOPICAL
     Route: 061
     Dates: start: 20110715, end: 20110716
  2. 5% BENZOYL PEROXIDE, OXY CLINICAL CLEARING TREATMENT [Suspect]
     Indication: ACNE
     Dosage: TOPICAL
     Route: 061
     Dates: start: 20110715
  3. 0.5% SALICYLIC ACID, OXY CLINICAL HYDRATING THERAPY [Suspect]
     Indication: ACNE
     Dosage: TOPICAL
     Route: 061
     Dates: start: 20110715, end: 20110716

REACTIONS (2)
  - PARAESTHESIA [None]
  - BURNS SECOND DEGREE [None]
